FAERS Safety Report 19233787 (Version 1)
Quarter: 2021Q2

REPORT INFORMATION
  Report Type: Other
  Country: US (occurrence: US)
  Receive Date: 20210507
  Receipt Date: 20210507
  Transmission Date: 20210717
  Serious: Yes (Other)
  Sender: FDA-Public Use
  Company Number: US-NOVA LABORATORIES LIMITED-2110323

PATIENT
  Age: 24 Month
  Sex: Male

DRUGS (3)
  1. ALLOPURINOL. [Suspect]
     Active Substance: ALLOPURINOL
  2. PURIXAN [Suspect]
     Active Substance: MERCAPTOPURINE
     Indication: ACUTE LYMPHOCYTIC LEUKAEMIA
  3. PURIXAN [Suspect]
     Active Substance: MERCAPTOPURINE

REACTIONS (3)
  - Alopecia [Recovered/Resolved]
  - Hepatotoxicity [Recovered/Resolved]
  - Abdominal pain [Recovered/Resolved]
